FAERS Safety Report 4910696-3 (Version None)
Quarter: 2006Q1

REPORT INFORMATION
  Report Type: 
  Country: None (occurrence: None)
  Receive Date: 20060208
  Receipt Date: 20060208
  Transmission Date: 20060701
  Serious: Yes (Other)
  Sender: FDA-Public Use
  Company Number: None

PATIENT
  Age: 52 Year
  Sex: Male
  Weight: 117.028 kg

DRUGS (2)
  1. CIPROFLOXACIN [Suspect]
     Indication: BACTERIAL INFECTION
     Dosage: 500MG PO BID
     Route: 048
     Dates: start: 20050715
  2. CIPROFLOXACIN [Suspect]
     Indication: ENTEROCOLITIS
     Dosage: 500MG PO BID
     Route: 048
     Dates: start: 20050715

REACTIONS (1)
  - BLISTER [None]
